FAERS Safety Report 6969273-5 (Version None)
Quarter: 2010Q3

REPORT INFORMATION
  Report Type: 
  Country: None (occurrence: None)
  Receive Date: 20100907
  Receipt Date: 20100828
  Transmission Date: 20110219
  Serious: Yes (Hospitalization, Other)
  Sender: FDA-Public Use
  Company Number: PHHY2010MX57379

PATIENT
  Sex: Female
  Weight: 60 kg

DRUGS (6)
  1. ZOLEDRONIC [Suspect]
     Indication: OSTEOPOROSIS
     Dosage: 5 MG/100ML/YEAR
     Dates: start: 20090903
  2. LEVOTHYROXINE [Concomitant]
     Indication: THYROID THERAPY
     Dosage: 1 TABLET PER DAY
     Dates: start: 19750101
  3. TRADAXAR [Concomitant]
     Dosage: UNK
     Dates: start: 20100101
  4. LYRICA [Concomitant]
     Indication: FIBROMYALGIA
     Dosage: 1 TABLET
     Dates: start: 20100601
  5. ANTISTAX [Concomitant]
     Indication: VARICES OESOPHAGEAL
     Dosage: 1 TABLET
     Dates: start: 20100701
  6. BENERVA [Concomitant]
     Indication: DRY SKIN
     Dosage: 1 TABLET
     Dates: start: 20100201

REACTIONS (3)
  - CATHETER PLACEMENT [None]
  - FEMUR FRACTURE [None]
  - VIITH NERVE PARALYSIS [None]
